FAERS Safety Report 22181341 (Version 1)
Quarter: 2023Q2

REPORT INFORMATION
  Report Type: Spontaneous
  Country: US (occurrence: None)
  Receive Date: 20230406
  Receipt Date: 20230406
  Transmission Date: 20230721
  Serious: No
  Sender: FDA-Public Use
  Company Number: US-VistaPharm, Inc.-VER202206-000512

PATIENT
  Sex: Female
  Weight: 88.451 kg

DRUGS (3)
  1. METHADONE HYDROCHLORIDE [Suspect]
     Active Substance: METHADONE HYDROCHLORIDE
     Indication: Drug dependence
     Dosage: 30 MG (METHADONE HYDROCHLORIDE TABLETS FOR ORAL SUSPENSION)
     Route: 048
     Dates: start: 2014
  2. METHADONE HYDROCHLORIDE [Suspect]
     Active Substance: METHADONE HYDROCHLORIDE
     Dosage: GRADUALLY INCREASED TO 130 MG (METHADONE HYDROCHLORIDE TABLETS FOR ORAL SUSPENSION)
     Route: 048
     Dates: end: 20220611
  3. METHADONE HYDROCHLORIDE [Suspect]
     Active Substance: METHADONE HYDROCHLORIDE
     Dosage: 130 MG (1 BOTTLE OF PREMIXED METHADONE HYDROCHLORIDE TABLETS IN WATER AS ORAL SUSPENSION)
     Route: 048
     Dates: start: 20220611

REACTIONS (2)
  - Product dispensing error [Unknown]
  - Product use complaint [Unknown]
